FAERS Safety Report 15689975 (Version 1)
Quarter: 2018Q4

REPORT INFORMATION
  Report Type: Spontaneous
  Country: CN (occurrence: CN)
  Receive Date: 20181205
  Receipt Date: 20181205
  Transmission Date: 20190205
  Serious: Yes (Hospitalization, Other)
  Sender: FDA-Public Use
  Company Number: CN-PFIZER INC-2018493328

PATIENT
  Age: 64 Year
  Sex: Female

DRUGS (2)
  1. YOU JIN [Concomitant]
     Indication: INFECTION
     Dosage: 8 MG, 1X/DAY
     Route: 048
     Dates: start: 20180808, end: 20180903
  2. CELECOXIB. [Suspect]
     Active Substance: CELECOXIB
     Indication: PAIN
     Dosage: 1 DF, 2X/DAY
     Route: 048
     Dates: start: 20180808, end: 20180903

REACTIONS (1)
  - Granulocytopenia [Recovering/Resolving]

NARRATIVE: CASE EVENT DATE: 20180903
